FAERS Safety Report 24815730 (Version 1)
Quarter: 2025Q1

REPORT INFORMATION
  Report Type: Spontaneous
  Country: US (occurrence: None)
  Receive Date: 20250107
  Receipt Date: 20250107
  Transmission Date: 20250409
  Serious: Yes (Hospitalization)
  Sender: FDA-CTU
  Company Number: None

PATIENT
  Age: 60 Year
  Sex: Male

DRUGS (1)
  1. TICAGRELOR [Suspect]
     Active Substance: TICAGRELOR
     Dosage: FREQUENCY : TWICE A DAY;?
     Route: 048
     Dates: end: 20240428

REACTIONS (2)
  - Gastrointestinal haemorrhage [None]
  - Transfusion [None]

NARRATIVE: CASE EVENT DATE: 20240503
